FAERS Safety Report 14921656 (Version 3)
Quarter: 2018Q4

REPORT INFORMATION
  Report Type: Spontaneous
  Country: JP (occurrence: JP)
  Receive Date: 20180522
  Receipt Date: 20181231
  Transmission Date: 20190204
  Serious: Yes (Other)
  Sender: FDA-Public Use
  Company Number: JP-ROCHE-2123604

PATIENT
  Age: 30 Year
  Sex: Female

DRUGS (2)
  1. PREDNISOLONE. [Concomitant]
     Active Substance: PREDNISOLONE
     Indication: THROMBOTIC THROMBOCYTOPENIC PURPURA
     Route: 065
  2. RITUXAN [Suspect]
     Active Substance: RITUXIMAB
     Indication: THROMBOTIC THROMBOCYTOPENIC PURPURA
     Route: 041

REACTIONS (2)
  - Abortion threatened [Unknown]
  - Maternal exposure during pregnancy [Unknown]
